FAERS Safety Report 21544513 (Version 2)
Quarter: 2022Q4

REPORT INFORMATION
  Report Type: Spontaneous
  Country: US (occurrence: US)
  Receive Date: 20221102
  Receipt Date: 20221213
  Transmission Date: 20230112
  Serious: Yes (Other)
  Sender: FDA-Public Use
  Company Number: US-JNJFOC-20221100385

PATIENT
  Age: 5 Decade
  Sex: Female
  Weight: 59.020 kg

DRUGS (3)
  1. TOPAMAX [Suspect]
     Active Substance: TOPIRAMATE
     Indication: Typical aura without headache
     Route: 048
     Dates: start: 2014, end: 202003
  2. KLONOPIN [Concomitant]
     Active Substance: CLONAZEPAM
     Indication: Typical aura without headache
     Dosage: 0.5 MG IN THE MORNING AND 0.25 MG AT NIGHT.
  3. ASPIRIN [Concomitant]
     Active Substance: ASPIRIN
     Indication: Cerebrovascular accident prophylaxis
     Dates: start: 2012

REACTIONS (14)
  - Facial bones fracture [Unknown]
  - Fall [Unknown]
  - Head injury [Unknown]
  - Haematochezia [Unknown]
  - Ear haemorrhage [Unknown]
  - Epistaxis [Unknown]
  - Dizziness [Unknown]
  - Weight decreased [Unknown]
  - Cognitive disorder [Unknown]
  - Somnolence [Unknown]
  - Taste disorder [Unknown]
  - Vision blurred [Unknown]
  - Contusion [Unknown]
  - Product physical issue [Unknown]

NARRATIVE: CASE EVENT DATE: 20200101
